FAERS Safety Report 5081514-0 (Version None)
Quarter: 2006Q3

REPORT INFORMATION
  Report Type: 
  Country: None (occurrence: None)
  Receive Date: 20060815
  Receipt Date: 20060815
  Transmission Date: 20061208
  Serious: Yes (Hospitalization)
  Sender: FDA-Public Use
  Company Number: None

PATIENT
  Age: 53 Year
  Sex: Male
  Weight: 74.6 kg

DRUGS (1)
  1. TAMSULOSIN HCL [Suspect]
     Dosage: 0.4 MG QD PO
     Route: 048

REACTIONS (4)
  - DIZZINESS [None]
  - HYPOTENSION [None]
  - MITRAL VALVE INCOMPETENCE [None]
  - SYNCOPE [None]
